FAERS Safety Report 6941155-4 (Version None)
Quarter: 2010Q3

REPORT INFORMATION
  Report Type: 
  Country: None (occurrence: None)
  Receive Date: 20100825
  Receipt Date: 20100609
  Transmission Date: 20110219
  Serious: No
  Sender: FDA-Public Use
  Company Number: US-BRISTOL-MYERS SQUIBB COMPANY-15128796

PATIENT
  Age: 62 Year
  Sex: Female

DRUGS (3)
  1. ONGLYZA [Suspect]
     Indication: DIABETES MELLITUS
     Route: 048
     Dates: start: 20100507
  2. GLUCOPHAGE [Suspect]
  3. AMARYL [Concomitant]

REACTIONS (1)
  - ABDOMINAL PAIN UPPER [None]
